FAERS Safety Report 6267673-2 (Version None)
Quarter: 2009Q3

REPORT INFORMATION
  Report Type: 
  Country: None (occurrence: None)
  Receive Date: 20090714
  Receipt Date: 20090709
  Transmission Date: 20100115
  Serious: Yes (Other)
  Sender: FDA-Public Use
  Company Number: GB-ABBOTT-09P-167-0584228-00

PATIENT
  Age: 72 Year
  Sex: Female

DRUGS (11)
  1. WARFARIN [Suspect]
     Indication: THROMBOSIS PROPHYLAXIS
     Dates: end: 20030901
  2. ZOTON CAPSULES [Suspect]
     Indication: DRUG USE FOR UNKNOWN INDICATION
  3. FLUOXETINE HCL [Suspect]
     Indication: DRUG USE FOR UNKNOWN INDICATION
  4. LEVOTHYROXINE SODIUM [Concomitant]
     Indication: DRUG USE FOR UNKNOWN INDICATION
  5. LOPERAMIDE HYDROCHLORIDE [Concomitant]
     Indication: DRUG USE FOR UNKNOWN INDICATION
     Dosage: NOT REPORTED
  6. TEMAZEPAM [Concomitant]
     Indication: DRUG USE FOR UNKNOWN INDICATION
     Dosage: NOT REPORTED
  7. CODEINE [Concomitant]
     Indication: DRUG USE FOR UNKNOWN INDICATION
     Dosage: NOT REPORTED
  8. URSODIOL [Concomitant]
     Indication: PRURITUS
  9. TPN [Concomitant]
     Indication: NUTRITIONAL SUPPORT
     Dosage: 38 KCAL/KG/DAY WITH 1.4 GM/KG/DAY LIPIDS
  10. TPN [Concomitant]
     Dosage: 25 KCAL/KG/DAY WITH LIPIDS 0.35 GM/KG/DAY
  11. STRUCTOLIPID [Concomitant]
     Indication: NUTRITIONAL SUPPORT

REACTIONS (1)
  - JAUNDICE CHOLESTATIC [None]
